FAERS Safety Report 24654798 (Version 1)
Quarter: 2024Q4

REPORT INFORMATION
  Report Type: Report from Study
  Country: JP (occurrence: JP)
  Receive Date: 20241122
  Receipt Date: 20241122
  Transmission Date: 20250115
  Serious: Yes (Hospitalization)
  Sender: BAUSCH AND LOMB
  Company Number: JP-BAUSCH-BL-2023-007269

PATIENT
  Age: 34 Year
  Sex: Male

DRUGS (10)
  1. EFINACONAZOLE [Suspect]
     Active Substance: EFINACONAZOLE
     Indication: Dermatophytosis of nail
     Route: 061
     Dates: start: 20221217
  2. LAMISIL [Concomitant]
     Active Substance: TERBINAFINE HYDROCHLORIDE
     Indication: Tinea pedis
     Route: 061
     Dates: start: 20221029, end: 20230602
  3. LOCOID [Concomitant]
     Active Substance: HYDROCORTISONE BUTYRATE
     Indication: Dermatitis atopic
     Route: 061
     Dates: start: 20221029
  4. BETAMETHASONE DIPROPIONATE [Concomitant]
     Active Substance: BETAMETHASONE DIPROPIONATE
     Indication: Dermatitis atopic
     Dosage: EVERY 12 HOURS
     Route: 061
     Dates: start: 20221029
  5. BETAMETHASONE DIPROPIONATE [Concomitant]
     Active Substance: BETAMETHASONE DIPROPIONATE
     Dosage: EVERY 12 HOURS
     Route: 061
     Dates: start: 20221112
  6. GLYCOSAMINOGLYCANS [Concomitant]
     Active Substance: GLYCOSAMINOGLYCANS
     Indication: Dermatitis atopic
     Route: 061
     Dates: start: 20221029
  7. DELGOCITINIB [Concomitant]
     Active Substance: DELGOCITINIB
     Indication: Dermatitis atopic
     Route: 061
     Dates: start: 20221029
  8. FEXOFENADINE HYDROCHLORIDE [Concomitant]
     Active Substance: FEXOFENADINE HYDROCHLORIDE
     Indication: Seasonal allergy
     Route: 048
     Dates: start: 20230311
  9. HEPARINOID [Concomitant]
     Indication: Dermatitis atopic
     Route: 061
     Dates: start: 20221029
  10. CLOBETASOL PROPIONATE [Concomitant]
     Active Substance: CLOBETASOL PROPIONATE
     Indication: Dermatitis atopic
     Route: 061
     Dates: start: 20230114

REACTIONS (3)
  - Dizziness [Recovered/Resolved]
  - Epilepsy [Recovered/Resolved]
  - Cerebrovascular arteriovenous malformation [Recovered/Resolved]

NARRATIVE: CASE EVENT DATE: 20230502
